FAERS Safety Report 9745127 (Version 1)
Quarter: 2013Q4

REPORT INFORMATION
  Report Type: Spontaneous
  Country: CH (occurrence: CH)
  Receive Date: 20131211
  Receipt Date: 20131211
  Transmission Date: 20140711
  Serious: Yes (Other)
  Sender: FDA-Public Use
  Company Number: CH-009507513-1312CHE003605

PATIENT
  Age: 50 Year
  Sex: Female
  Weight: 74 kg

DRUGS (3)
  1. COSAAR + COSAAR 50 [Suspect]
     Dosage: 50 MILLIGRAM, INTAKE APROX. FOR 3 MONTHS, PRECIES INFORMATION WAS UNAVAILABLE
     Route: 048
     Dates: start: 2002
  2. LOSARTAN-MEPHA PLUS [Suspect]
     Indication: ESSENTIAL HYPERTENSION
     Dosage: 1 DOSAGE FORM,
     Route: 065
     Dates: start: 201307
  3. LOSARTAN-MEPHA PLUS [Suspect]
     Dosage: 1DOSAGE FORM, IRREGULAR INTAKE
     Route: 065
     Dates: start: 201303, end: 201307

REACTIONS (5)
  - Cutaneous lupus erythematosus [Recovering/Resolving]
  - Antinuclear antibody increased [Unknown]
  - Erythema [Recovering/Resolving]
  - Rash [Recovering/Resolving]
  - Photosensitivity reaction [Unknown]
